FAERS Safety Report 8528088 (Version 5)
Quarter: 2012Q4

REPORT INFORMATION
  Report Type: 
  Country: US (occurrence: US)
  Receive Date: 20120424
  Receipt Date: 20120928
  Transmission Date: 20130627
  Serious: Yes (Hospitalization, Disabling, Other)
  Sender: FDA-Public Use
  Company Number: US-009507513-1204USA03122

PATIENT

DRUGS (9)
  1. FOSAMAX [Suspect]
     Indication: OSTEOPENIA
     Dosage: 70 mg, UNK
     Route: 048
     Dates: start: 20050831, end: 20080218
  2. FOSAMAX [Suspect]
     Indication: OSTEOPOROSIS
  3. FOSAMAX [Suspect]
     Indication: OSTEOPENIA
     Route: 048
     Dates: start: 20080224, end: 20080803
  4. FOSAMAX [Suspect]
     Indication: OSTEOPOROSIS
  5. BONIVA [Suspect]
     Indication: OSTEOPOROSIS
     Dosage: 150 mg, QM
     Route: 048
     Dates: start: 20080801, end: 20090831
  6. ALLEGRA-D [Concomitant]
     Indication: HYPERSENSITIVITY
     Dosage: 60 mg, bid
     Dates: start: 20051024, end: 20051122
  7. CIPROFLOXACIN [Concomitant]
     Indication: INFECTION
     Dates: start: 20050512, end: 20060808
  8. ALBUTEROL [Concomitant]
     Dates: start: 20051115, end: 20051129
  9. FEXOFENADINE HYDROCHLORIDE [Concomitant]
     Indication: HYPERSENSITIVITY
     Dosage: 60 mg, q12h
     Dates: start: 20071022, end: 20080818

REACTIONS (39)
  - Femoral neck fracture [Not Recovered/Not Resolved]
  - Atrial septal defect [Unknown]
  - Pulmonary embolism [Unknown]
  - Cerebrovascular accident [Not Recovered/Not Resolved]
  - Atrial septal defect [Unknown]
  - Low turnover osteopathy [Unknown]
  - Radius fracture [Unknown]
  - Depression [Not Recovered/Not Resolved]
  - Adverse event [Unknown]
  - Hypertension [Unknown]
  - Dyslipidaemia [Not Recovered/Not Resolved]
  - Ear pain [Unknown]
  - Dysuria [Unknown]
  - Infection [Unknown]
  - Respiratory tract infection [Unknown]
  - Pain [Unknown]
  - Postmenopausal haemorrhage [Unknown]
  - Breast tenderness [Unknown]
  - Uterine leiomyoma [Unknown]
  - Ovarian cyst [Unknown]
  - Bronchitis chronic [Not Recovered/Not Resolved]
  - Breast disorder [Unknown]
  - Nuchal rigidity [Unknown]
  - Tenderness [Unknown]
  - Anxiety [Unknown]
  - Blood disorder [Unknown]
  - Arrhythmia supraventricular [Unknown]
  - Deep vein thrombosis [Unknown]
  - Neuralgia [Unknown]
  - Pneumonia [Unknown]
  - Anaemia postoperative [Unknown]
  - Hepatic cyst [Unknown]
  - Urinary retention postoperative [Unknown]
  - Sedation [Unknown]
  - Thrombocytopenia [Unknown]
  - Constipation [Unknown]
  - Dizziness [Unknown]
  - Oedema peripheral [Unknown]
  - Gastrooesophageal reflux disease [Not Recovered/Not Resolved]
